FAERS Safety Report 19465660 (Version 3)
Quarter: 2021Q3

REPORT INFORMATION
  Report Type: Spontaneous
  Country: US (occurrence: US)
  Receive Date: 20210626
  Receipt Date: 20210705
  Transmission Date: 20211014
  Serious: Yes (Other)
  Sender: FDA-Public Use
  Company Number: US-AUROBINDO-AUR-APL-2021-026255

PATIENT
  Sex: Male

DRUGS (4)
  1. DILANTIN [Suspect]
     Active Substance: PHENYTOIN
     Indication: SEIZURE
  2. PHENYTOIN 100MG [Suspect]
     Active Substance: PHENYTOIN
     Indication: SEIZURE
  3. DILANTIN [Suspect]
     Active Substance: PHENYTOIN
     Indication: EPILEPSY
     Dosage: 100 MILLIGRAM (TAKES TWO CAPSULES EVERY OTHER DAY)
     Route: 048
     Dates: start: 20111111
  4. PHENYTOIN 100MG [Suspect]
     Active Substance: PHENYTOIN
     Indication: EPILEPSY
     Dosage: 100 MILLIGRAM
     Route: 048

REACTIONS (2)
  - Product substitution issue [Unknown]
  - Seizure [Recovered/Resolved]
